FAERS Safety Report 25912552 (Version 1)
Quarter: 2025Q4

REPORT INFORMATION
  Report Type: Spontaneous
  Country: EU (occurrence: EU)
  Receive Date: 20251013
  Receipt Date: 20251013
  Transmission Date: 20260118
  Serious: Yes (Other)
  Sender: SANDOZ
  Company Number: EU-AMGEN-GRCSP2025189928

PATIENT
  Age: 24 Year
  Sex: Male

DRUGS (21)
  1. FILGRASTIM [Suspect]
     Active Substance: FILGRASTIM
     Indication: Myelosuppression
     Dosage: UNK, (ON 6TH DAY OF EACH CYCLE)
     Route: 065
  2. FILGRASTIM [Suspect]
     Active Substance: FILGRASTIM
     Indication: Prophylaxis
  3. XGEVA [Suspect]
     Active Substance: DENOSUMAB
     Indication: Mediastinum neoplasm
     Dosage: UNK
     Route: 065
  4. BLEOMYCIN [Concomitant]
     Active Substance: BLEOMYCIN SULFATE
     Indication: Product used for unknown indication
     Dosage: 30000 INTERNATIONAL UNIT, (DAY 1-15)
     Route: 042
  5. CISPLATIN [Concomitant]
     Active Substance: CISPLATIN
     Indication: Product used for unknown indication
     Dosage: 20 MILLIGRAM/SQ. METER, (ON DAYS 1-5)
     Route: 042
  6. CISPLATIN [Concomitant]
     Active Substance: CISPLATIN
     Dosage: 25 MILLIGRAM/SQ. METER, (20 MILLIGRAM/SQ. METER, (ON DAYS 1-5)
     Route: 042
  7. ETOPOSIDE [Concomitant]
     Active Substance: ETOPOSIDE
     Indication: Product used for unknown indication
     Dosage: 100 MILLIGRAM/SQ. METER, (ON DAYS 1-5)
     Route: 042
  8. ETOPOSIDE [Concomitant]
     Active Substance: ETOPOSIDE
     Dosage: 100 MILLIGRAM/SQ. METER, (ON DAYS 1-5)
     Route: 042
  9. ETOPOSIDE [Concomitant]
     Active Substance: ETOPOSIDE
     Dosage: 75 MILLIGRAM/SQ. METER, (ON DAYS 1-5)
     Route: 042
  10. IFOSFAMIDE [Concomitant]
     Active Substance: IFOSFAMIDE
     Indication: Product used for unknown indication
     Dosage: 1200 MILLIGRAM/SQ. METER, (ON DAYS 1-5)
     Route: 042
  11. IFOSFAMIDE [Concomitant]
     Active Substance: IFOSFAMIDE
     Dosage: 1500 MILLIGRAM/SQ. METER, (ON DAYS 2-5)
     Route: 042
  12. IFOSFAMIDE [Concomitant]
     Active Substance: IFOSFAMIDE
     Dosage: 1800 MILLIGRAM/SQ. METER, (ON DAYS 1-5)
     Route: 042
  13. IFOSFAMIDE [Concomitant]
     Active Substance: IFOSFAMIDE
     Dosage: 400 MILLIGRAM/SQ. METER
     Route: 042
  14. MESNA [Concomitant]
     Active Substance: MESNA
     Dosage: 120 MILLIGRAM/SQ. METER, (ON DAY 1)
     Route: 042
  15. MESNA [Concomitant]
     Active Substance: MESNA
     Dosage: 1200 MILLIGRAM/SQ. METER, (ON DAYS 1-5)
     Route: 042
  16. MESNA [Concomitant]
     Active Substance: MESNA
     Dosage: 1800 MILLIGRAM/SQ. METER
     Route: 042
  17. MESNA [Concomitant]
     Active Substance: MESNA
     Dosage: 240 MILLIGRAM/SQ. METER
     Route: 042
  18. MESNA [Concomitant]
     Active Substance: MESNA
     Dosage: 360 MILLIGRAM/SQ. METER, (ON DAYS 1-5)
     Route: 042
  19. MESNA [Concomitant]
     Active Substance: MESNA
     Dosage: 480 MILLIGRAM/SQ. METER
     Route: 042
  20. MESNA [Concomitant]
     Active Substance: MESNA
     Indication: Product used for unknown indication
     Dosage: UNK, (AT 0, 4, AND 8 H)
     Route: 065
  21. PACLITAXEL [Concomitant]
     Active Substance: PACLITAXEL
     Indication: Product used for unknown indication
     Dosage: 250 MILLIGRAM/SQ. METER, (ON DAY 1 OF EACH CYCLE)
     Route: 042

REACTIONS (15)
  - Febrile neutropenia [Unknown]
  - Haematotoxicity [Unknown]
  - Mediastinum neoplasm [Unknown]
  - Myelosuppression [Unknown]
  - Hypoxia [Unknown]
  - Minimal residual disease [Unknown]
  - Tachycardia [Unknown]
  - Tinnitus [Unknown]
  - Paraesthesia [Unknown]
  - Anaemia [Unknown]
  - Decreased appetite [Unknown]
  - Asthenia [Unknown]
  - Diarrhoea [Unknown]
  - Drug effective for unapproved indication [Unknown]
  - Off label use [Unknown]
